FAERS Safety Report 6712917-3 (Version None)
Quarter: 2010Q2

REPORT INFORMATION
  Report Type: 
  Country: None (occurrence: None)
  Receive Date: 20100506
  Receipt Date: 20100429
  Transmission Date: 20101027
  Serious: Yes (Congenital Anomaly)
  Sender: FDA-Public Use
  Company Number: US-BRISTOL-MYERS SQUIBB COMPANY-15029879

PATIENT
  Age: 4 Year

DRUGS (10)
  1. SUSTIVA [Suspect]
     Indication: ANTIRETROVIRAL THERAPY
     Route: 064
  2. STAVUDINE [Suspect]
     Indication: ANTIRETROVIRAL THERAPY
     Route: 064
  3. DIDANOSINE [Suspect]
     Indication: ANTIRETROVIRAL THERAPY
     Route: 064
  4. ABACAVIR [Suspect]
     Indication: ANTIRETROVIRAL THERAPY
     Route: 064
  5. LAMIVUDINE [Suspect]
     Indication: ANTIRETROVIRAL THERAPY
     Route: 064
  6. TENOFOVIR DISOPROXIL FUMARATE [Suspect]
     Indication: ANTIRETROVIRAL THERAPY
     Route: 064
  7. FOSAMPRENAVIR CALCIUM [Suspect]
     Indication: ANTIRETROVIRAL THERAPY
     Route: 064
  8. RITONAVIR [Suspect]
     Indication: ANTIRETROVIRAL THERAPY
     Route: 064
  9. SAQUINAVIR MESYLATE [Suspect]
     Indication: ANTIRETROVIRAL THERAPY
     Route: 064
  10. KALETRA [Suspect]
     Indication: ANTIRETROVIRAL THERAPY
     Route: 064

REACTIONS (1)
  - PLAGIOCEPHALY [None]
